FAERS Safety Report 9678367 (Version 1)
Quarter: 2013Q4

REPORT INFORMATION
  Report Type: Spontaneous
  Country: US (occurrence: None)
  Receive Date: 20131106
  Receipt Date: 20131106
  Transmission Date: 20140711
  Serious: Yes (Other)
  Sender: FDA-Public Use
  Company Number: FK201304853

PATIENT
  Age: 90 Year
  Sex: Female

DRUGS (2)
  1. METHOTREXATE [Suspect]
     Indication: PSORIASIS
     Dosage: 7.5 TO 15 MG WEEKLY
  2. CIPROFLOXACIN [Suspect]
     Indication: PSEUDOMONAS INFECTION

REACTIONS (5)
  - Toxicity to various agents [None]
  - Psoriasis [None]
  - Nausea [None]
  - Vomiting [None]
  - Potentiating drug interaction [None]
